FAERS Safety Report 12859939 (Version 6)
Quarter: 2018Q4

REPORT INFORMATION
  Report Type: Report from Study
  Country: CA (occurrence: CA)
  Receive Date: 20161019
  Receipt Date: 20181106
  Transmission Date: 20190204
  Serious: Yes (Hospitalization, Other)
  Sender: FDA-Public Use
  Company Number: CA-GLAXOSMITHKLINE-CA2016GSK145500

PATIENT
  Age: 81 Year
  Sex: Female

DRUGS (6)
  1. ADVAIR HFA [Suspect]
     Active Substance: FLUTICASONE PROPIONATE\SALMETEROL XINAFOATE
     Indication: PRODUCT USED FOR UNKNOWN INDICATION
     Dosage: UNK UNK, BID
  2. NUCALA [Suspect]
     Active Substance: MEPOLIZUMAB
     Dosage: 100 MG, Z,MONTHLY
     Route: 042
     Dates: start: 20161019
  3. NUCALA [Suspect]
     Active Substance: MEPOLIZUMAB
     Dosage: 100 MG, Z,MONTHLY
     Route: 042
     Dates: start: 20161019
  4. ATROVENT [Suspect]
     Active Substance: IPRATROPIUM BROMIDE
     Indication: PRODUCT USED FOR UNKNOWN INDICATION
     Dosage: UNK UNK, PRN
  5. NUCALA [Suspect]
     Active Substance: MEPOLIZUMAB
     Indication: ASTHMA
     Dosage: 100 MG, Z,MONTHLY
     Route: 042
     Dates: start: 20161019
  6. SALBUTAMOL SULPHATE [Suspect]
     Active Substance: ALBUTEROL SULFATE
     Indication: PRODUCT USED FOR UNKNOWN INDICATION
     Dosage: UNK UNK, PRN

REACTIONS (13)
  - Haemoglobin decreased [Unknown]
  - Dyspnoea [Unknown]
  - Eating disorder [Unknown]
  - General physical health deterioration [Recovering/Resolving]
  - Pallor [Unknown]
  - Chronic obstructive pulmonary disease [Not Recovered/Not Resolved]
  - Gait disturbance [Not Recovered/Not Resolved]
  - Kyphosis [Unknown]
  - Obstructive airways disorder [Unknown]
  - Pleural effusion [Unknown]
  - Cardiac failure congestive [Unknown]
  - Dysphagia [Unknown]
  - Insomnia [Unknown]

NARRATIVE: CASE EVENT DATE: 20180709
